FAERS Safety Report 14550371 (Version 1)
Quarter: 2018Q1

REPORT INFORMATION
  Report Type: Report from Study
  Country: US (occurrence: US)
  Receive Date: 20180219
  Receipt Date: 20180219
  Transmission Date: 20180509
  Serious: No
  Sender: FDA-Public Use
  Company Number: US-ACADIA PHARMACEUTICALS INC.-ACA-2018-006970

PATIENT
  Age: 83 Year
  Sex: Male
  Weight: 113.38 kg

DRUGS (3)
  1. NUPLAZID [Suspect]
     Active Substance: PIMAVANSERIN TARTRATE
     Indication: PARKINSON^S DISEASE PSYCHOSIS
     Dosage: 34 MG, QD
     Route: 065
     Dates: start: 20180103
  2. NUPLAZID [Suspect]
     Active Substance: PIMAVANSERIN TARTRATE
     Indication: DELUSION
     Dosage: 17 MG, QD
     Route: 065
     Dates: start: 20171231, end: 20180102
  3. NUPLAZID [Suspect]
     Active Substance: PIMAVANSERIN TARTRATE
     Indication: HALLUCINATION
     Dosage: 34 MG, QD
     Route: 065
     Dates: start: 20171226

REACTIONS (10)
  - Fall [Unknown]
  - Insomnia [Unknown]
  - Therapeutic response unexpected [Unknown]
  - Abnormal dreams [Not Recovered/Not Resolved]
  - Logorrhoea [Unknown]
  - Prescribed underdose [Unknown]
  - Blood pressure abnormal [Recovered/Resolved]
  - Thirst [Unknown]
  - Confusional state [Unknown]
  - Hallucination [Not Recovered/Not Resolved]

NARRATIVE: CASE EVENT DATE: 20171227
